FAERS Safety Report 8035705-7 (Version None)
Quarter: 2011Q4

REPORT INFORMATION
  Report Type: 
  Country: None (occurrence: None)
  Receive Date: 20111222
  Receipt Date: 20111213
  Transmission Date: 20120403
  Serious: Yes (Hospitalization)
  Sender: FDA-Public Use
  Company Number: 7051322

PATIENT
  Age: 27 Year
  Sex: Female

DRUGS (13)
  1. LEVOTHYROXINE SODIUM [Suspect]
     Indication: CONGENITAL HYPOTHYROIDISM
     Dosage: 125;150;175  MCG, ( EVERY TWO DAYS) ORAL
     Route: 048
     Dates: start: 20080401
  2. LEVOTHYROXINE SODIUM [Suspect]
     Indication: CONGENITAL HYPOTHYROIDISM
     Dosage: 125;150;175  MCG, ( EVERY TWO DAYS) ORAL
     Route: 048
     Dates: start: 20110101
  3. LEVOTHYROXINE SODIUM [Suspect]
     Indication: CONGENITAL HYPOTHYROIDISM
     Dosage: 125;150;175  MCG, ( EVERY TWO DAYS) ORAL
     Route: 048
     Dates: start: 20060401
  4. LEVOTHYROXINE SODIUM [Suspect]
     Indication: CONGENITAL HYPOTHYROIDISM
     Dosage: 125;150;175  MCG, ( EVERY TWO DAYS) ORAL
     Route: 048
     Dates: start: 20110218, end: 20110325
  5. LEVOTHYROXINE SODIUM [Suspect]
     Indication: CONGENITAL HYPOTHYROIDISM
     Dosage: 125;150;175  MCG, ( EVERY TWO DAYS) ORAL
     Route: 048
     Dates: start: 20030101, end: 20050101
  6. LEVOTHYROXINE SODIUM [Suspect]
     Indication: CONGENITAL HYPOTHYROIDISM
     Dosage: 125;150;175  MCG, ( EVERY TWO DAYS) ORAL
     Route: 048
     Dates: start: 20070601
  7. LEVOTHYROXINE SODIUM [Suspect]
     Indication: CONGENITAL HYPOTHYROIDISM
     Dosage: 125;150;175  MCG, ( EVERY TWO DAYS) ORAL
     Route: 048
     Dates: start: 20101227
  8. LEVOTHYROXINE SODIUM [Suspect]
     Indication: CONGENITAL HYPOTHYROIDISM
     Dosage: 125;150;175  MCG, ( EVERY TWO DAYS) ORAL
     Route: 048
     Dates: start: 20110214, end: 20110217
  9. LEVOTHYROXINE SODIUM [Suspect]
     Indication: CONGENITAL HYPOTHYROIDISM
     Dosage: 125;150;175  MCG, ( EVERY TWO DAYS) ORAL
     Route: 048
     Dates: start: 20061001
  10. LEVOTHYROXINE SODIUM [Suspect]
     Indication: CONGENITAL HYPOTHYROIDISM
     Dosage: 125;150;175  MCG, ( EVERY TWO DAYS) ORAL
     Route: 048
     Dates: start: 20080801
  11. LEVOTHYROXINE SODIUM [Suspect]
     Indication: CONGENITAL HYPOTHYROIDISM
     Dosage: 125;150;175  MCG, ( EVERY TWO DAYS) ORAL
     Route: 048
     Dates: start: 20091101
  12. LEVOTHYROXINE SODIUM [Suspect]
     Indication: CONGENITAL HYPOTHYROIDISM
     Dosage: 125;150;175  MCG, ( EVERY TWO DAYS) ORAL
     Route: 048
     Dates: start: 20070901
  13. LEVOTHYROXINE SODIUM [Suspect]
     Indication: CONGENITAL HYPOTHYROIDISM
     Dosage: 125;150;175  MCG, ( EVERY TWO DAYS) ORAL
     Route: 048
     Dates: start: 20071201

REACTIONS (9)
  - LOSS OF CONTROL OF LEGS [None]
  - SENSORY LOSS [None]
  - TACHYCARDIA [None]
  - OVERDOSE [None]
  - MALAISE [None]
  - NEUROPATHY PERIPHERAL [None]
  - GENERAL PHYSICAL HEALTH DETERIORATION [None]
  - HYPERTHYROIDISM [None]
  - WEIGHT DECREASED [None]
